FAERS Safety Report 7759721-5 (Version None)
Quarter: 2011Q3

REPORT INFORMATION
  Report Type: 
  Country: None (occurrence: None)
  Receive Date: 20110919
  Receipt Date: 20101013
  Transmission Date: 20111222
  Serious: Yes (Hospitalization, Other)
  Sender: FDA-Public Use
  Company Number: PHHY2009CA51838

PATIENT
  Sex: Female

DRUGS (7)
  1. ZOLEDRONOC ACID [Suspect]
     Dosage: 5 MG, UNK
     Dates: start: 20091123
  2. RABEPRAZOLE SODIUM [Concomitant]
     Dosage: UNK UKN, UNK
  3. ARTHROTEC [Concomitant]
     Dosage: UNK UKN, UNK
  4. ZOLEDRONOC ACID [Suspect]
     Indication: OSTEOPOROSIS
     Dosage: 5 MG, UNK
     Dates: start: 20081126
  5. QUININE SULFATE [Concomitant]
     Dosage: UNK UKN, UNK
  6. AMITRIPTYLINE HCL [Concomitant]
     Dosage: UNK UKN, UNK
  7. LEVOTHYROXINE SODIUM [Concomitant]
     Dosage: UNK UKN, UNK

REACTIONS (4)
  - PLATELET COUNT ABNORMAL [None]
  - TOTAL CHOLESTEROL/HDL RATIO DECREASED [None]
  - HIGH DENSITY LIPOPROTEIN INCREASED [None]
  - BLADDER CANCER [None]
